FAERS Safety Report 20393749 (Version 1)
Quarter: 2022Q1

REPORT INFORMATION
  Report Type: Spontaneous
  Country: US (occurrence: US)
  Receive Date: 20220128
  Receipt Date: 20220128
  Transmission Date: 20220423
  Serious: No
  Sender: FDA-Public Use
  Company Number: US-009507513-2201USA004310

PATIENT
  Age: 62 Year
  Sex: Female

DRUGS (9)
  1. BELSOMRA [Suspect]
     Active Substance: SUVOREXANT
     Route: 048
  2. FLUOXETINE [Suspect]
     Active Substance: FLUOXETINE HYDROCHLORIDE
     Indication: Depression
  3. PAROXETINE [Suspect]
     Active Substance: PAROXETINE
     Indication: Depression
  4. SERTRALINE [Suspect]
     Active Substance: SERTRALINE HYDROCHLORIDE
     Indication: Depression
  5. DULOXETINE [Suspect]
     Active Substance: DULOXETINE
     Indication: Depression
  6. BUPROPION [Suspect]
     Active Substance: BUPROPION
     Indication: Depression
  7. MIRTAZAPINE [Suspect]
     Active Substance: MIRTAZAPINE
     Indication: Depression
  8. ZOLPIDEM [Suspect]
     Active Substance: ZOLPIDEM TARTRATE
  9. OLANZAPINE [Suspect]
     Active Substance: OLANZAPINE

REACTIONS (3)
  - Anxiety [Recovered/Resolved]
  - Sedation [Recovered/Resolved]
  - Drug intolerance [Recovered/Resolved]
